FAERS Safety Report 10005674 (Version 1)
Quarter: 2014Q1

REPORT INFORMATION
  Report Type: Spontaneous
  Country: US (occurrence: US)
  Receive Date: 20140313
  Receipt Date: 20140313
  Transmission Date: 20141002
  Serious: No
  Sender: FDA-Public Use
  Company Number: US-BIOGENIDEC-2014BI021247

PATIENT
  Sex: Male

DRUGS (5)
  1. TECFIDERA [Suspect]
     Indication: MULTIPLE SCLEROSIS
     Route: 048
  2. COD LIVER [Concomitant]
  3. NAPROXAN [Concomitant]
  4. VITAMIN B12 [Concomitant]
  5. VITAMIN D3 [Concomitant]

REACTIONS (5)
  - Fatigue [Unknown]
  - Flatulence [Unknown]
  - Abdominal distension [Unknown]
  - Tendon disorder [Unknown]
  - Flushing [Unknown]
